FAERS Safety Report 18605057 (Version 3)
Quarter: 2020Q4

REPORT INFORMATION
  Report Type: Spontaneous
  Country: JP (occurrence: JP)
  Receive Date: 20201211
  Receipt Date: 20201226
  Transmission Date: 20210114
  Serious: Yes (Death, Other)
  Sender: FDA-Public Use
  Company Number: JP-JNJFOC-20201211643

PATIENT
  Age: 8 Decade
  Sex: Female

DRUGS (4)
  1. VELCADE [Suspect]
     Active Substance: BORTEZOMIB
     Indication: PRODUCT USED FOR UNKNOWN INDICATION
     Dosage: DOSE UNKNOWN
     Route: 065
     Dates: start: 202010, end: 2020
  2. DEXAMETHASONE. [Suspect]
     Active Substance: DEXAMETHASONE
     Dosage: DOSE UNKNOWN
     Route: 065
     Dates: start: 202010, end: 2020
  3. DARZALEX [Suspect]
     Active Substance: DARATUMUMAB
     Indication: PRODUCT USED FOR UNKNOWN INDICATION
     Dosage: DOSE UNKNOWN?THE BATCH NUMBER WAS UNAVAILABLE.
     Route: 041
     Dates: start: 202010, end: 2020
  4. MELPHALAN. [Suspect]
     Active Substance: MELPHALAN
     Dosage: DOSE UNKNOWN
     Route: 065
     Dates: start: 202010, end: 2020

REACTIONS (2)
  - Respiratory disorder [Fatal]
  - Pneumonia cytomegaloviral [Recovered/Resolved]

NARRATIVE: CASE EVENT DATE: 2020
